FAERS Safety Report 15252317 (Version 1)
Quarter: 2018Q3

REPORT INFORMATION
  Report Type: Spontaneous
  Country: US (occurrence: US)
  Receive Date: 20180717
  Receipt Date: 20180717
  Transmission Date: 20181010
  Serious: Yes (Hospitalization)
  Sender: FDA-Public Use
  Company Number: None

PATIENT
  Age: 70 Year
  Sex: Male

DRUGS (1)
  1. EDOXABAN [Suspect]
     Active Substance: EDOXABAN TOSYLATE
     Indication: ATRIAL FIBRILLATION

REACTIONS (5)
  - Faeces discoloured [None]
  - Atrial flutter [None]
  - Anaemia [None]
  - Haemorrhage [None]
  - Acute kidney injury [None]

NARRATIVE: CASE EVENT DATE: 20180424
